FAERS Safety Report 10873477 (Version 1)
Quarter: 2015Q1

REPORT INFORMATION
  Report Type: Report from Study
  Country: IT (occurrence: IT)
  Receive Date: 20150227
  Receipt Date: 20150227
  Transmission Date: 20150721
  Serious: Yes (Hospitalization)
  Sender: FDA-Public Use
  Company Number: IT-SA-2015SA003302

PATIENT
  Age: 38 Year
  Sex: Female
  Weight: 72.5 kg

DRUGS (6)
  1. TRIMETHOPRIM/SULFAMETHOXAZOLE [Concomitant]
     Indication: PROPHYLAXIS
     Dosage: 400 MG+80 MG BID/BIS
     Dates: start: 20140707
  2. FILGRASTIM [Concomitant]
     Active Substance: FILGRASTIM
     Dosage: 3000.5 MCG/ME BID
     Route: 058
     Dates: start: 20141212
  3. PLERIXAFOR [Suspect]
     Active Substance: PLERIXAFOR
     Indication: HAEMATOPOIETIC STEM CELL MOBILISATION
     Dosage: DOSE:20 MILLIGRAM(S)/MILLILITRE
     Route: 058
     Dates: start: 20141215, end: 20141217
  4. PANTOPRAZOLE [Concomitant]
     Active Substance: PANTOPRAZOLE SODIUM
     Indication: PROPHYLAXIS
     Route: 048
     Dates: start: 20140707
  5. ITRACONAZOLE. [Concomitant]
     Active Substance: ITRACONAZOLE
     Indication: PROPHYLAXIS
     Route: 048
     Dates: start: 20140707
  6. DARBEPOETIN ALFA [Concomitant]
     Active Substance: DARBEPOETIN ALFA
     Indication: PROPHYLAXIS
     Dosage: DOSE:500 MILLIGRAM(S)/MILLILITRE
     Route: 058
     Dates: start: 20140707

REACTIONS (3)
  - Paraesthesia [Recovered/Resolved]
  - Dizziness [Recovered/Resolved]
  - Tachycardia [Recovered/Resolved]

NARRATIVE: CASE EVENT DATE: 20141217
